FAERS Safety Report 14298388 (Version 1)
Quarter: 2017Q4

REPORT INFORMATION
  Report Type: Spontaneous
  Country: US (occurrence: US)
  Receive Date: 20171215
  Receipt Date: 20171215
  Transmission Date: 20180321
  Serious: Yes (Disabling)
  Sender: FDA-Public Use
  Company Number: None

PATIENT
  Age: 64 Year
  Sex: Female
  Weight: 61.65 kg

DRUGS (1)
  1. BOTOX [Suspect]
     Active Substance: ONABOTULINUMTOXINA
     Indication: TORTICOLLIS
     Dosage: ?          OTHER FREQUENCY:EVERY THREE MONTHS;?
     Route: 058

REACTIONS (4)
  - Asthenia [None]
  - Balance disorder [None]
  - Neck pain [None]
  - Headache [None]

NARRATIVE: CASE EVENT DATE: 20171206
